FAERS Safety Report 6827303-5 (Version None)
Quarter: 2010Q3

REPORT INFORMATION
  Report Type: 
  Country: None (occurrence: None)
  Receive Date: 20100709
  Receipt Date: 20100628
  Transmission Date: 20110219
  Serious: Yes (Other)
  Sender: FDA-Public Use
  Company Number: CA-WYE-H15979610

PATIENT
  Sex: Male

DRUGS (1)
  1. TECTA [Suspect]
     Dosage: UNKNOWN
     Dates: start: 20100623, end: 20100625

REACTIONS (4)
  - ABDOMINAL PAIN [None]
  - INFECTION [None]
  - INFLUENZA LIKE ILLNESS [None]
  - MIGRAINE [None]
